FAERS Safety Report 10218847 (Version 2)
Quarter: 2014Q3

REPORT INFORMATION
  Report Type: Spontaneous
  Country: US (occurrence: US)
  Receive Date: 20140605
  Receipt Date: 20140704
  Transmission Date: 20150326
  Serious: No
  Sender: FDA-Public Use
  Company Number: US-ASTRAZENECA-2014SE33420

PATIENT
  Age: 82 Year
  Sex: Male

DRUGS (1)
  1. SYMBICORT [Suspect]
     Active Substance: BUDESONIDE\FORMOTEROL FUMARATE DIHYDRATE
     Dosage: 160/4.5 MCG  TWO PUFFS  DAILY
     Route: 055

REACTIONS (3)
  - Intentional product misuse [Unknown]
  - Mobility decreased [Unknown]
  - Circumstance or information capable of leading to medication error [Unknown]
